FAERS Safety Report 8846872 (Version 1)
Quarter: 2012Q4

REPORT INFORMATION
  Report Type: Spontaneous
  Country: US (occurrence: None)
  Receive Date: 20121016
  Receipt Date: 20121016
  Transmission Date: 20130627
  Serious: Yes (Disabling)
  Sender: FDA-Public Use
  Company Number: None

PATIENT
  Age: 77 Year
  Sex: Female
  Weight: 72.58 kg

DRUGS (1)
  1. EPINEPHRINE [Suspect]
     Indication: CATARACT OPERATION
     Dates: start: 20120821, end: 20120821

REACTIONS (3)
  - Wrong drug administered [None]
  - Chromatopsia [None]
  - Vision blurred [None]
